FAERS Safety Report 17509570 (Version 1)
Quarter: 2020Q1

REPORT INFORMATION
  Report Type: Report from Study
  Country: NL (occurrence: NL)
  Receive Date: 20200306
  Receipt Date: 20200306
  Transmission Date: 20200409
  Serious: Yes (Hospitalization)
  Sender: FDA-Public Use
  Company Number: NL-ROCHE-2561610

PATIENT
  Age: 65 Year
  Sex: Female

DRUGS (2)
  1. VEMURAFENIB. [Suspect]
     Active Substance: VEMURAFENIB
     Indication: ADENOCARCINOMA
     Dosage: ON 01/MAR/2020, SHE RECEIVED MOST RECENT DOSE OF VEMURAFENIB
     Route: 048
     Dates: start: 20190226
  2. COBIMETINIB. [Suspect]
     Active Substance: COBIMETINIB
     Indication: ADENOCARCINOMA
     Dosage: ON 01/MAR/2020, SHE RECEIVED MOST RECENT DOSE OF COBIMETINIB
     Route: 048
     Dates: start: 20190226

REACTIONS (1)
  - Lower gastrointestinal haemorrhage [Not Recovered/Not Resolved]

NARRATIVE: CASE EVENT DATE: 20200227
